FAERS Safety Report 9680497 (Version 1)
Quarter: 2013Q4

REPORT INFORMATION
  Report Type: Spontaneous
  Country: US (occurrence: US)
  Receive Date: 20131111
  Receipt Date: 20131111
  Transmission Date: 20140711
  Serious: No
  Sender: FDA-Public Use
  Company Number: US-B.I. PHARMACEUTICALS,INC./RIDGEFIELD-2013-BI-34188BP

PATIENT
  Sex: Male
  Weight: 91 kg

DRUGS (3)
  1. COMBIVENT [Suspect]
     Indication: ASTHMA
     Dosage: STRENGTH: 18 MCG / 103 MCG; DAILY DOSE: 72 MCG /412 MCG
     Route: 055
     Dates: start: 2005
  2. LISINOPRIL [Concomitant]
     Indication: HYPERTENSION
     Route: 048
  3. HYDRALAZINE [Concomitant]
     Indication: HYPERTENSION
     Route: 048

REACTIONS (3)
  - Off label use [Recovered/Resolved]
  - Dyspnoea [Recovered/Resolved]
  - Abasia [Recovered/Resolved]
